FAERS Safety Report 7394979 (Version 2)
Quarter: 2013Q4

REPORT INFORMATION
  Report Type: Spontaneous
  Country: US (occurrence: None)
  Receive Date: 20100513
  Receipt Date: 20131003
  Transmission Date: 20140711
  Serious: Yes (Hospitalization, Other)
  Sender: FDA-Public Use
  Company Number: 2010S1002603

PATIENT
  Age: 62 Year
  Sex: Male

DRUGS (6)
  1. FLEET PHOSPPHO-SODA [Suspect]
     Indication: COLONOSCOPY
     Dosage: 24 HOURS, ORAL
     Route: 048
     Dates: start: 20080806, end: 20080806
  2. LISNORAL(LISINOPRIL) [Concomitant]
  3. COREG(CARVEDILOL) [Concomitant]
  4. WARFARIN(WARFARIN) [Concomitant]
  5. LASIX [Concomitant]
  6. AMIDARONE [Concomitant]

REACTIONS (1)
  - Renal impairment [None]
